FAERS Safety Report 5906155-1 (Version None)
Quarter: 2008Q4

REPORT INFORMATION
  Report Type: 
  Country: None (occurrence: None)
  Receive Date: 20081002
  Receipt Date: 20060821
  Transmission Date: 20090506
  Serious: Yes (Other)
  Sender: FDA-Public Use
  Company Number: DE-ASTRAZENECA-2008PK02112

PATIENT
  Age: 80 Year
  Sex: Male
  Weight: 80 kg

DRUGS (3)
  1. NEXIUM [Suspect]
     Route: 048
     Dates: start: 20041210, end: 20041211
  2. DICLOFENAC [Concomitant]
     Indication: OSTEOARTHRITIS
     Dates: start: 20031217
  3. ASPIRIN [Concomitant]

REACTIONS (1)
  - PRURIGO [None]
